FAERS Safety Report 5802215-4 (Version None)
Quarter: 2008Q3

REPORT INFORMATION
  Report Type: 
  Country: None (occurrence: None)
  Receive Date: 20080707
  Receipt Date: 20080626
  Transmission Date: 20090109
  Serious: Yes (Other)
  Sender: FDA-Public Use
  Company Number: US-PFIZER INC-2008043767

PATIENT
  Sex: Male
  Weight: 82.6 kg

DRUGS (7)
  1. EXUBERA [Suspect]
     Indication: TYPE 1 DIABETES MELLITUS
     Dosage: DAILY DOSE:20MG-TEXT:7MG (AC B); 6MG (AC L); 7MG (AC D)
     Route: 055
  2. LANTUS [Concomitant]
     Route: 058
  3. SIMVASTATIN [Concomitant]
     Route: 048
  4. LISINOPRIL [Concomitant]
     Route: 048
  5. MULTI-VITAMINS [Concomitant]
     Route: 048
  6. VITAMIN B-12 [Concomitant]
     Route: 048
  7. VITAMIN D [Concomitant]
     Route: 048

REACTIONS (1)
  - LUNG NEOPLASM [None]
